FAERS Safety Report 5063202-X (Version None)
Quarter: 2006Q3

REPORT INFORMATION
  Report Type: 
  Country: None (occurrence: None)
  Receive Date: 20060703
  Receipt Date: 20051031
  Transmission Date: 20061208
  Serious: No
  Sender: FDA-Public Use
  Company Number: 2005S1010821

PATIENT
  Age: 31 Year
  Sex: Male
  Weight: 86.1834 kg

DRUGS (6)
  1. CLOZAPINE [Suspect]
     Indication: SCHIZOPHRENIA, PARANOID TYPE
     Dosage: 300 MG HS ORAL
     Route: 048
     Dates: start: 20020601, end: 20051022
  2. CLOZAPINE [Suspect]
     Indication: SCHIZOPHRENIA, PARANOID TYPE
     Dosage: 300 MG HS ORAL
     Route: 048
     Dates: start: 20051024
  3. LOPERAMIDE HYDROCHLORIDE [Concomitant]
  4. VALPROIC ACID [Concomitant]
  5. BUPROPION HCL [Concomitant]
  6. RANITIDINE HYDROCHLORIDE [Concomitant]

REACTIONS (1)
  - GRANULOCYTOPENIA [None]
